FAERS Safety Report 22324390 (Version 1)
Quarter: 2023Q2

REPORT INFORMATION
  Report Type: Spontaneous
  Country: US (occurrence: US)
  Receive Date: 20230516
  Receipt Date: 20230516
  Transmission Date: 20230721
  Serious: No
  Sender: FDA-Public Use
  Company Number: US-PFIZER INC-US-GBT-020611

PATIENT
  Age: 17 Year
  Sex: Male

DRUGS (2)
  1. OXBRYTA [Suspect]
     Active Substance: VOXELOTOR
     Dosage: 1500 MG, 1X/DAY
     Route: 048
  2. OXBRYTA [Suspect]
     Active Substance: VOXELOTOR
     Dosage: 1500 MG, DAILY; (TAKE 3 TABLETS (1,500 MG) BY MOUTH EVERY DAY)
     Route: 048

REACTIONS (1)
  - Depression [Unknown]

NARRATIVE: CASE EVENT DATE: 20230213
